FAERS Safety Report 16930998 (Version 1)
Quarter: 2020Q3

REPORT INFORMATION
  Report Type: Report from Study
  Country: PL (occurrence: PL)
  Receive Date: 20191017
  Receipt Date: 20191017
  Transmission Date: 20201104
  Serious: Yes (Death, Hospitalization)
  Sender: FDA-Public Use
  Company Number: PL-PFIZER INC-2017540989

PATIENT
  Age: 41 Year
  Sex: Female
  Weight: 75 kg

DRUGS (18)
  1. METOCLOPRAMID [Concomitant]
     Active Substance: METOCLOPRAMIDE
     Indication: NAUSEA
     Dosage: 1 TAB TWO OR THREE TIMES PER DAY
     Route: 048
     Dates: start: 20171215, end: 20171228
  2. BUSCOLYSIN [Concomitant]
     Active Substance: BUTYLSCOPOLAMINE
     Indication: ABDOMINAL PAIN
     Dosage: 1 DF 3X/DAY; DOSE 1, UNITS: AMP ; FREQUENCY TREE TIMES A DAY
     Route: 042
     Dates: start: 20171213, end: 20171214
  3. CLEXANE [Concomitant]
     Active Substance: ENOXAPARIN SODIUM
     Indication: THROMBOSIS PROPHYLAXIS
     Dosage: 40 MG, 1X/DAY
     Route: 058
     Dates: start: 20171213
  4. ESTAZOLAM. [Concomitant]
     Active Substance: ESTAZOLAM
     Indication: INITIAL INSOMNIA
     Dosage: 2 MG, SINGLE
     Route: 048
     Dates: start: 20171214, end: 20171214
  5. DEXAVEN [Concomitant]
     Active Substance: DEXAMETHASONE
     Indication: VOMITING
     Dosage: 8 MG, 2X/DAY
     Route: 042
     Dates: start: 20171213, end: 20171215
  6. PROTIFAR [Concomitant]
     Active Substance: DIETARY SUPPLEMENT
     Indication: HYPOALBUMINAEMIA
     Dosage: 2.5 G, 3X/DAY
     Route: 048
     Dates: start: 20171215
  7. HEPA?MERZ /01390204/ [Concomitant]
     Active Substance: ORNITHINE ASPARTATE
     Indication: PROPHYLAXIS
     Dosage: 1 AMP, 2X/DAY
     Route: 042
  8. METOCLOPRAMID [Concomitant]
     Active Substance: METOCLOPRAMIDE
     Indication: VOMITING
  9. DIKLOFENAK /00372301/ [Concomitant]
     Indication: ANALGESIC THERAPY
     Dosage: UNK
     Route: 054
  10. FRAXIPARINE [Concomitant]
     Active Substance: NADROPARIN CALCIUM
     Indication: THROMBOSIS PROPHYLAXIS
     Dosage: 60 MG, UNK
     Route: 058
  11. TALAZOPARIB. [Suspect]
     Active Substance: TALAZOPARIB
     Indication: OVARIAN CANCER
     Dosage: 0.75 MG, 1X/DAY
     Route: 048
     Dates: start: 20171110, end: 20171222
  12. ELECTROLYTES NOS [Concomitant]
     Active Substance: ELECTROLYTES NOS
     Indication: PROPHYLAXIS AGAINST DEHYDRATION
  13. METEOSPASMYL [Concomitant]
     Indication: ABDOMINAL PAIN
     Dosage: 1 CAPSULE, 3X/DAY
     Route: 048
     Dates: start: 20171215, end: 20171228
  14. TORECAN [Concomitant]
     Active Substance: THIETHYLPERAZINE MALATE
     Indication: VOMITING
     Dosage: 1 DF 3X/DAY; DOSE 1, UNITS: AMP ; FREQUENCY TREE TIMES A DAY
     Route: 042
     Dates: start: 20171213, end: 20171215
  15. ELECTROLYTES NOS [Concomitant]
     Active Substance: ELECTROLYTES NOS
     Indication: VOMITING
     Dosage: 500 ML, 2X/DAY
     Route: 042
     Dates: start: 20171213, end: 20171215
  16. KALIPOZ [Concomitant]
     Active Substance: POTASSIUM CHLORIDE
     Indication: HYPOKALAEMIA
     Dosage: 1 CAPSULE, 2X/DAY
     Route: 048
     Dates: start: 20171214, end: 20171214
  17. CIPRONEX /00697201/ [Concomitant]
     Active Substance: CIPROFLOXACIN
     Dosage: UNK
     Route: 042
  18. CIPRONEX /00697201/ [Concomitant]
     Active Substance: CIPROFLOXACIN
     Indication: PROPHYLAXIS
     Dosage: 500 MG, 2X/DAY
     Route: 048
     Dates: start: 20171205, end: 20171209

REACTIONS (2)
  - Jaundice [Not Recovered/Not Resolved]
  - Dyspepsia [Recovered/Resolved]

NARRATIVE: CASE EVENT DATE: 20171212
